FAERS Safety Report 13617229 (Version 1)
Quarter: 2017Q2

REPORT INFORMATION
  Report Type: Spontaneous
  Country: US (occurrence: US)
  Receive Date: 20170606
  Receipt Date: 20170606
  Transmission Date: 20170830
  Serious: Yes (Other)
  Sender: FDA-Public Use
  Company Number: US-SA-2017SA072433

PATIENT
  Age: 20 Year
  Sex: Female

DRUGS (4)
  1. SOLOSTAR [Suspect]
     Active Substance: DEVICE
     Indication: TYPE 1 DIABETES MELLITUS
     Dates: start: 2012
  2. SOLOSTAR [Suspect]
     Active Substance: DEVICE
     Indication: TYPE 1 DIABETES MELLITUS
     Dates: start: 2012
  3. LANTUS SOLOSTAR [Suspect]
     Active Substance: INSULIN GLARGINE
     Indication: TYPE 1 DIABETES MELLITUS
     Dosage: 8 UNITS, 16 UNITS
     Route: 065
     Dates: start: 2012
  4. LANTUS SOLOSTAR [Suspect]
     Active Substance: INSULIN GLARGINE
     Indication: TYPE 1 DIABETES MELLITUS
     Dosage: 8 UNITS, 16 UNITS
     Route: 065
     Dates: start: 2012

REACTIONS (3)
  - Wrong technique in product usage process [Unknown]
  - Hypoglycaemic seizure [Unknown]
  - Product use issue [Unknown]

NARRATIVE: CASE EVENT DATE: 2016
